FAERS Safety Report 6238188-2 (Version None)
Quarter: 2009Q2

REPORT INFORMATION
  Report Type: 
  Country: None (occurrence: None)
  Receive Date: 20090622
  Receipt Date: 20090616
  Transmission Date: 20091009
  Serious: Yes (Hospitalization)
  Sender: FDA-Public Use
  Company Number: US-JNJFOC-20090506006

PATIENT
  Age: 75 Year
  Sex: Female

DRUGS (8)
  1. ARESTIN [Suspect]
     Indication: DRUG USE FOR UNKNOWN INDICATION
     Dosage: 6 CARTRIDGES
     Route: 065
  2. ZETIA [Concomitant]
     Route: 065
  3. DIOVAN [Concomitant]
     Route: 065
  4. ADVAIR HFA [Concomitant]
     Route: 065
  5. ALBUTEROL [Concomitant]
     Route: 055
  6. DUONEB [Concomitant]
     Route: 065
  7. APRESOLINE [Concomitant]
     Route: 065
  8. MECLIZINE [Concomitant]
     Route: 065

REACTIONS (2)
  - HEADACHE [None]
  - VERTIGO POSITIONAL [None]
